FAERS Safety Report 4604282-2 (Version None)
Quarter: 2005Q1

REPORT INFORMATION
  Report Type: 
  Country: None (occurrence: None)
  Receive Date: 20050201
  Receipt Date: 20040723
  Transmission Date: 20050727
  Serious: Yes (Other)
  Sender: FDA-Public Use
  Company Number: MEDI-0002138

PATIENT
  Age: 34 Year
  Sex: Female

DRUGS (1)
  1. CYTOGAM [Suspect]
     Indication: RENAL FAILURE
     Dosage: 100ML INTRAVENOUS
     Route: 042
     Dates: start: 20021115, end: 20040716

REACTIONS (4)
  - DYSPNOEA [None]
  - HEADACHE [None]
  - HYPERSENSITIVITY [None]
  - THROAT TIGHTNESS [None]
